FAERS Safety Report 9147843 (Version 1)
Quarter: 2013Q1

REPORT INFORMATION
  Report Type: Spontaneous
  Country: US (occurrence: US)
  Receive Date: 20130307
  Receipt Date: 20130307
  Transmission Date: 20140127
  Serious: Yes (Other)
  Sender: FDA-Public Use
  Company Number: PHHY2013US021357

PATIENT
  Age: 65 Year
  Sex: Male

DRUGS (4)
  1. ACETYLSALICYLIC ACID [Suspect]
  2. METOPROLOL [Concomitant]
  3. DILTIAZEM [Concomitant]
  4. PERCOCET [Concomitant]

REACTIONS (7)
  - Toxicity to various agents [Recovered/Resolved]
  - Dyspnoea [Recovered/Resolved]
  - Cough [Recovered/Resolved]
  - Confusional state [Recovered/Resolved]
  - Restlessness [Recovered/Resolved]
  - Blood creatinine increased [Recovered/Resolved]
  - pH urine increased [Recovered/Resolved]
